FAERS Safety Report 4778369-8 (Version None)
Quarter: 2005Q3

REPORT INFORMATION
  Report Type: 
  Country: None (occurrence: None)
  Receive Date: 20050922
  Receipt Date: 20050913
  Transmission Date: 20060218
  Serious: Yes (Death, Other)
  Sender: FDA-Public Use
  Company Number: 2005-03412

PATIENT
  Age: 45 Year
  Sex: Male

DRUGS (1)
  1. COLCHICINE (WATSON LABORATORIES) (COLCHICINE) TABLET, 0.6MG [Suspect]
     Dosage: ORAL
     Route: 048

REACTIONS (1)
  - MULTI-ORGAN FAILURE [None]
